FAERS Safety Report 6098184-5 (Version None)
Quarter: 2009Q1

REPORT INFORMATION
  Report Type: 
  Country: None (occurrence: None)
  Receive Date: 20090227
  Receipt Date: 20090219
  Transmission Date: 20090719
  Serious: Yes (Death)
  Sender: FDA-Public Use
  Company Number: US-GILEAD-2009-0020408

PATIENT
  Sex: Female
  Weight: 68.554 kg

DRUGS (16)
  1. LETAIRIS [Suspect]
     Indication: PULMONARY ARTERIAL HYPERTENSION
     Route: 048
     Dates: start: 20080218, end: 20090212
  2. FLOLAN [Concomitant]
  3. OXYGEN [Concomitant]
  4. VIAGRA [Concomitant]
  5. VITAMIN E [Concomitant]
  6. CRESTOR [Concomitant]
  7. ASCORBIC ACID [Concomitant]
  8. ARICEPT [Concomitant]
  9. METAMUCIL [Concomitant]
  10. CALCIUM [Concomitant]
  11. QUININE SULFATE [Concomitant]
  12. NEXIUM [Concomitant]
  13. GLUCOSAMINE [Concomitant]
  14. POTASSIUM CHLORIDE [Concomitant]
  15. PLAVIX [Concomitant]
  16. ASPIRIN [Concomitant]

REACTIONS (2)
  - AORTIC VALVE STENOSIS [None]
  - PULMONARY HYPERTENSION [None]
